FAERS Safety Report 8306201-4 (Version None)
Quarter: 2012Q2

REPORT INFORMATION
  Report Type: 
  Country: None (occurrence: None)
  Receive Date: 20120423
  Receipt Date: 20120417
  Transmission Date: 20120825
  Serious: Yes (Other)
  Sender: FDA-Public Use
  Company Number: US-TEVA-326107USA

PATIENT
  Sex: Female
  Weight: 63.56 kg

DRUGS (1)
  1. PARAGARD T 380A [Suspect]
     Indication: CONTRACEPTION
     Route: 015
     Dates: start: 20091204, end: 20110512

REACTIONS (6)
  - BLADDER INJURY [None]
  - LIVE BIRTH [None]
  - DEVICE DISLOCATION [None]
  - UTERINE PERFORATION [None]
  - PREGNANCY WITH CONTRACEPTIVE DEVICE [None]
  - DRUG INEFFECTIVE [None]
